FAERS Safety Report 3132024 (Version 5)
Quarter: 2014Q4

REPORT INFORMATION
  Report Type: Spontaneous
  Country: US (occurrence: US)
  Receive Date: 19980710
  Receipt Date: 20141121
  Transmission Date: 20150529
  Serious: Yes (Hospitalization, Congenital Anomaly, Other)
  Sender: FDA-Public Use
  Company Number: M083142

PATIENT
  Age: 1 Day
  Sex: Male
  Weight: 2.84 kg

DRUGS (5)
  1. RETROVIR [Suspect]
     Active Substance: ZIDOVUDINE
     Route: 064
     Dates: start: 19980112, end: 19980602
  2. TMP-SMX [Concomitant]
     Active Substance: SULFAMETHOXAZOLE\TRIMETHOPRIM
     Route: 064
     Dates: start: 19980112
  3. VIRACEPT [Suspect]
     Active Substance: NELFINAVIR MESYLATE
     Route: 064
     Dates: start: 19980205, end: 19980602
  4. VIDEX [Suspect]
     Active Substance: DIDANOSINE
     Route: 064
     Dates: start: 19980205, end: 19980602
  5. OXYTOCIN. [Concomitant]
     Active Substance: OXYTOCIN
     Route: 064

REACTIONS (12)
  - Hydronephrosis [Not Recovered/Not Resolved]
  - Trisomy 21 [Not Recovered/Not Resolved]
  - Patent ductus arteriosus [Not Recovered/Not Resolved]
  - Hypotension [Recovered/Resolved]
  - Pulmonary hypertension [Not Recovered/Not Resolved]
  - Sepsis [Unknown]
  - Hydroureter [Not Recovered/Not Resolved]
  - Premature baby [Recovered/Resolved]
  - Exposure during pregnancy [Recovered/Resolved]
  - Hypoxia [Recovered/Resolved]
  - Thrombocytopenia [Recovered/Resolved]
  - Cerebral infarction [Not Recovered/Not Resolved]

NARRATIVE: CASE EVENT DATE: 19980602
